FAERS Safety Report 16808935 (Version 1)
Quarter: 2019Q3

REPORT INFORMATION
  Report Type: Spontaneous
  Country: LT (occurrence: LT)
  Receive Date: 20190916
  Receipt Date: 20190916
  Transmission Date: 20191005
  Serious: Yes (Other)
  Sender: FDA-Public Use
  Company Number: LT-ACCORD-154601

PATIENT
  Age: 51 Year
  Sex: Female
  Weight: 98 kg

DRUGS (22)
  1. FENTANYL. [Concomitant]
     Active Substance: FENTANYL
     Route: 065
  2. ISOPTIN [Concomitant]
     Active Substance: VERAPAMIL HYDROCHLORIDE
     Route: 065
  3. GABAPENTIN. [Concomitant]
     Active Substance: GABAPENTIN
     Route: 065
  4. CARBOPLATIN. [Suspect]
     Active Substance: CARBOPLATIN
     Dosage: 6 CYCLES
     Route: 065
     Dates: start: 20170220, end: 20170818
  5. CARBOPLATIN. [Suspect]
     Active Substance: CARBOPLATIN
     Dosage: 6 CYCLES
     Route: 065
     Dates: start: 20180223, end: 20181009
  6. ANASTROZOLE. [Suspect]
     Active Substance: ANASTROZOLE
     Indication: BRCA1 GENE MUTATION
     Route: 065
     Dates: start: 20181010, end: 20190222
  7. PACLITAXEL/PACLITAXEL LIPOSOME [Suspect]
     Active Substance: PACLITAXEL
     Indication: OVARIAN EPITHELIAL CANCER STAGE I
     Dosage: 2 CYCLES
     Route: 065
     Dates: start: 20100709, end: 20100730
  8. CISPLATIN. [Suspect]
     Active Substance: CISPLATIN
     Indication: OVARIAN EPITHELIAL CANCER STAGE I
  9. CYCLOPHOSPHAMIDE. [Suspect]
     Active Substance: CYCLOPHOSPHAMIDE
     Indication: OVARIAN EPITHELIAL CANCER STAGE I
     Dosage: 2 CYCLES
     Route: 065
     Dates: start: 201110
  10. PACLITAXEL/PACLITAXEL LIPOSOME [Suspect]
     Active Substance: PACLITAXEL
     Indication: BRCA1 GENE MUTATION
     Dosage: 6 CYCLES, STABLE DISEASE
     Route: 065
     Dates: start: 20100222, end: 20100601
  11. GEMCITABINE/GEMCITABINE HYDROCHLORIDE [Suspect]
     Active Substance: GEMCITABINE\GEMCITABINE HYDROCHLORIDE
     Indication: BRCA1 GENE MUTATION
     Dosage: 6 CYCLES
     Route: 065
     Dates: start: 20170220, end: 20170818
  12. CARBOPLATIN. [Suspect]
     Active Substance: CARBOPLATIN
     Dosage: 2 CYCLES
     Route: 065
     Dates: start: 201110
  13. CISPLATIN. [Suspect]
     Active Substance: CISPLATIN
     Indication: BRCA1 GENE MUTATION
     Dosage: 6 CYCLES
     Route: 065
     Dates: start: 20090611, end: 20091012
  14. CARBOPLATIN. [Suspect]
     Active Substance: CARBOPLATIN
     Dosage: 6 CYCLES
     Route: 065
     Dates: start: 20131120, end: 20140409
  15. CARBOPLATIN. [Suspect]
     Active Substance: CARBOPLATIN
     Indication: OVARIAN EPITHELIAL CANCER STAGE I
     Dosage: 2 CYCLES
     Route: 065
     Dates: start: 20100709, end: 20100730
  16. CARBOPLATIN. [Suspect]
     Active Substance: CARBOPLATIN
     Indication: BRCA1 GENE MUTATION
     Dosage: 6 CYCLES, STABLE DISEASE
     Route: 065
     Dates: start: 20100222, end: 20100611
  17. DOXORUBICIN [Suspect]
     Active Substance: DOXORUBICIN
     Indication: BRCA1 GENE MUTATION
     Dosage: 6 CYCLES
     Route: 065
     Dates: start: 20180223, end: 20181009
  18. CYCLOPHOSPHAMIDE. [Suspect]
     Active Substance: CYCLOPHOSPHAMIDE
     Indication: BRCA1 GENE MUTATION
     Dosage: 6 CYCLES, STRENGTH: 1 G
     Route: 065
     Dates: start: 20090611, end: 20091012
  19. DEXAMETHASONE. [Concomitant]
     Active Substance: DEXAMETHASONE
     Route: 065
  20. ANASTROZOLE. [Suspect]
     Active Substance: ANASTROZOLE
     Indication: OVARIAN EPITHELIAL CANCER STAGE I
  21. LORAZEPAM. [Concomitant]
     Active Substance: LORAZEPAM
     Route: 065
  22. GEMCITABINE/GEMCITABINE HYDROCHLORIDE [Suspect]
     Active Substance: GEMCITABINE\GEMCITABINE HYDROCHLORIDE
     Indication: OVARIAN EPITHELIAL CANCER STAGE I

REACTIONS (8)
  - Bone marrow failure [Unknown]
  - Neutropenia [Unknown]
  - Metastases to central nervous system [Unknown]
  - Metastases to lymph nodes [Unknown]
  - Metastases to retroperitoneum [Unknown]
  - Off label use [Unknown]
  - Thrombocytopenia [Unknown]
  - Anaemia [Unknown]

NARRATIVE: CASE EVENT DATE: 201110
